FAERS Safety Report 9319561 (Version 1)
Quarter: 2013Q2

REPORT INFORMATION
  Report Type: Spontaneous
  Country: US (occurrence: US)
  Receive Date: 20130530
  Receipt Date: 20130530
  Transmission Date: 20140414
  Serious: No
  Sender: FDA-Public Use
  Company Number: US-GLAXOSMITHKLINE-A1007172A

PATIENT
  Age: 29 Year
  Sex: Female

DRUGS (1)
  1. FLOLAN [Suspect]
     Dosage: 44NGKM CONTINUOUS
     Route: 065

REACTIONS (2)
  - Vomiting [Unknown]
  - Dizziness [Unknown]
